FAERS Safety Report 5661800-3 (Version None)
Quarter: 2008Q1

REPORT INFORMATION
  Report Type: 
  Country: None (occurrence: None)
  Receive Date: 20080306
  Receipt Date: 20080219
  Transmission Date: 20080703
  Serious: Yes (Other)
  Sender: FDA-Public Use
  Company Number: ENT 2007-0161

PATIENT
  Age: 71 Year
  Sex: Female

DRUGS (5)
  1. COMTAN [Suspect]
     Indication: PARKINSON'S DISEASE
     Dosage: 500 MG (100 MG, 5 IN 1 D)
     Route: 048
     Dates: start: 20070530, end: 20070613
  2. ONEALFA [Concomitant]
  3. DIAZEPAM [Concomitant]
  4. ROHYPNOL [Concomitant]
  5. KETOPROFEN [Concomitant]

REACTIONS (4)
  - DRUG INTERACTION [None]
  - DYSKINESIA [None]
  - GAIT DISTURBANCE [None]
  - HALLUCINATION, VISUAL [None]
